FAERS Safety Report 9030588 (Version 3)
Quarter: 2013Q1

REPORT INFORMATION
  Report Type: Spontaneous
  Country: BE (occurrence: BE)
  Receive Date: 20130123
  Receipt Date: 20130313
  Transmission Date: 20140127
  Serious: Yes (Hospitalization, Disabling)
  Sender: FDA-Public Use
  Company Number: BE-ELI_LILLY_AND_COMPANY-BE201301006085

PATIENT
  Sex: Male

DRUGS (3)
  1. EFIENT [Suspect]
     Indication: STENT PLACEMENT
     Dosage: 60 MG, LOADING DOSE
     Route: 048
  2. EFIENT [Suspect]
     Dosage: 10 MG, QD
     Route: 048
     Dates: start: 20121120, end: 20130109
  3. ASPIRIN [Concomitant]

REACTIONS (1)
  - Thrombosis in device [Unknown]
